FAERS Safety Report 6391636-X (Version None)
Quarter: 2009Q4

REPORT INFORMATION
  Report Type: 
  Country: None (occurrence: None)
  Receive Date: 20091007
  Receipt Date: 20090824
  Transmission Date: 20100525
  Serious: Yes (Other)
  Sender: FDA-Public Use
  Company Number: A0786663A

PATIENT
  Sex: Male

DRUGS (11)
  1. ADVAIR DISKUS 100/50 [Suspect]
     Indication: DRUG USE FOR UNKNOWN INDICATION
     Dosage: 2PUFF TWICE PER DAY
     Route: 055
  2. SEREVENT [Suspect]
     Indication: DRUG USE FOR UNKNOWN INDICATION
     Route: 055
  3. ABILIFY [Concomitant]
     Route: 065
  4. AEROCHAMBER [Concomitant]
  5. ALBUTEROL [Concomitant]
  6. SINGULAIR [Concomitant]
  7. ZYRTEC [Concomitant]
  8. QVAR 40 [Concomitant]
     Dosage: 40MCG TWICE PER DAY
     Route: 055
  9. VENTOLIN [Concomitant]
     Route: 055
  10. XOPENEX [Concomitant]
     Route: 055
  11. XOPENEX [Concomitant]

REACTIONS (1)
  - ASTHMA [None]
